FAERS Safety Report 5416652-3 (Version None)
Quarter: 2007Q3

REPORT INFORMATION
  Report Type: 
  Country: None (occurrence: None)
  Receive Date: 20070814
  Receipt Date: 20070806
  Transmission Date: 20080115
  Serious: Yes (Other)
  Sender: FDA-Public Use
  Company Number: 236114K07USA

PATIENT
  Age: 43 Year
  Sex: Female
  Weight: 75.2971 kg

DRUGS (3)
  1. REBIF [Suspect]
     Indication: MULTIPLE SCLEROSIS
     Dosage: 44 MCG, 3 IN 1 WEEKS, SUBCUTANEOUS
     Route: 058
     Dates: start: 20070410
  2. MOTRIN [Concomitant]
  3. IMITREX [Concomitant]

REACTIONS (6)
  - ANXIETY [None]
  - BACK PAIN [None]
  - CONVULSION [None]
  - NEURALGIA [None]
  - RHEUMATOID FACTOR POSITIVE [None]
  - SLEEP DISORDER [None]
